FAERS Safety Report 22009891 (Version 3)
Quarter: 2023Q1

REPORT INFORMATION
  Report Type: Report from Study
  Country: US (occurrence: US)
  Receive Date: 20230220
  Receipt Date: 20230223
  Transmission Date: 20230418
  Serious: Yes (Hospitalization, Other)
  Sender: FDA-Public Use
  Company Number: US-SA-SAC20230216000586

PATIENT
  Age: 83 Year
  Sex: Male

DRUGS (1)
  1. DRONEDARONE [Suspect]
     Active Substance: DRONEDARONE
     Indication: Atrial fibrillation
     Dosage: 400 MG, BID
     Route: 048
     Dates: start: 2022, end: 20230217

REACTIONS (6)
  - Loss of consciousness [Unknown]
  - Cardiac failure [Unknown]
  - Muscle spasms [Unknown]
  - Fall [Unknown]
  - Fatigue [Unknown]
  - Anxiety [Unknown]
